FAERS Safety Report 7712740-7 (Version None)
Quarter: 2011Q3

REPORT INFORMATION
  Report Type: 
  Country: None (occurrence: None)
  Receive Date: 20110826
  Receipt Date: 20110815
  Transmission Date: 20111222
  Serious: Yes (Hospitalization)
  Sender: FDA-Public Use
  Company Number: US-GLAXOSMITHKLINE-A0875980A

PATIENT
  Age: 59 Year
  Sex: Female
  Weight: 122.7 kg

DRUGS (8)
  1. GLUCOTROL [Concomitant]
  2. LIPITOR [Concomitant]
  3. ADVAIR DISKUS 100/50 [Concomitant]
  4. ALPRAZOLAM [Concomitant]
  5. AVANDIA [Suspect]
     Indication: DIABETES MELLITUS
     Dosage: 4MG PER DAY
     Route: 048
     Dates: start: 20020101, end: 20070201
  6. GLUCOPHAGE [Concomitant]
  7. CELEBREX [Concomitant]
  8. LIPITOR [Concomitant]

REACTIONS (4)
  - MYOCARDIAL INFARCTION [None]
  - CARDIAC FAILURE CONGESTIVE [None]
  - CEREBRAL ISCHAEMIA [None]
  - CORONARY ARTERY DISEASE [None]
